FAERS Safety Report 5704773-7 (Version None)
Quarter: 2008Q2

REPORT INFORMATION
  Report Type: 
  Country: None (occurrence: None)
  Receive Date: 20080414
  Receipt Date: 20080407
  Transmission Date: 20081010
  Serious: Yes (Disabling)
  Sender: FDA-Public Use
  Company Number: US-BAXTER-2008BH003290

PATIENT
  Sex: Male

DRUGS (2)
  1. HEPARIN SODIUM [Suspect]
     Indication: MYOCARDIAL INFARCTION
     Dosage: DOSE UNIT:UNKNOWN
     Route: 065
     Dates: start: 20060318, end: 20060326
  2. HEPARIN SODIUM [Suspect]
     Indication: VASCULAR GRAFT
     Dosage: DOSE UNIT:UNKNOWN
     Route: 065
     Dates: start: 20060318, end: 20060326

REACTIONS (10)
  - CYANOSIS [None]
  - DRY GANGRENE [None]
  - EJECTION FRACTION DECREASED [None]
  - GANGRENE [None]
  - GENERAL PHYSICAL HEALTH DETERIORATION [None]
  - HEPARIN-INDUCED THROMBOCYTOPENIA [None]
  - PAIN IN EXTREMITY [None]
  - RENAL FAILURE [None]
  - RESPIRATORY FAILURE [None]
  - SKIN DISCOLOURATION [None]
